FAERS Safety Report 5973600-5 (Version None)
Quarter: 2008Q4

REPORT INFORMATION
  Report Type: 
  Country: None (occurrence: None)
  Receive Date: 20081201
  Receipt Date: 20081118
  Transmission Date: 20090506
  Serious: Yes (Hospitalization, Other)
  Sender: FDA-Public Use
  Company Number: US-ELI_LILLY_AND_COMPANY-US200802005001

PATIENT
  Sex: Female
  Weight: 88.435 kg

DRUGS (1)
  1. ZYPREXA [Suspect]

REACTIONS (4)
  - BLOOD GLUCOSE ABNORMAL [None]
  - DIABETES MELLITUS [None]
  - ENDOCRINE DISORDER [None]
  - MYOCARDIAL INFARCTION [None]
